FAERS Safety Report 10677236 (Version 1)
Quarter: 2014Q4

REPORT INFORMATION
  Report Type: Spontaneous
  Country: DK (occurrence: DK)
  Receive Date: 20141226
  Receipt Date: 20141226
  Transmission Date: 20150529
  Serious: Yes (Other)
  Sender: FDA-Public Use
  Company Number: DK-ASTRAZENECA-2014SE97619

PATIENT
  Age: 33 Year
  Sex: Female

DRUGS (5)
  1. ELIDEL [Concomitant]
     Active Substance: PIMECROLIMUS
  2. SYMBICORT [Suspect]
     Active Substance: BUDESONIDE\FORMOTEROL FUMARATE DIHYDRATE
     Indication: ASTHMA
     Dosage: UNKNOWN
     Route: 055
  3. LOCERYL [Concomitant]
     Active Substance: AMOROLFINE HYDROCHLORIDE
  4. PROTOPIC [Concomitant]
     Active Substance: TACROLIMUS
  5. LOCOID [Suspect]
     Active Substance: HYDROCORTISONE BUTYRATE
     Indication: ECZEMA
     Route: 065

REACTIONS (3)
  - Secondary adrenocortical insufficiency [Recovered/Resolved]
  - Addison^s disease [Recovered/Resolved]
  - Fatigue [Not Recovered/Not Resolved]

NARRATIVE: CASE EVENT DATE: 201008
